FAERS Safety Report 10902241 (Version 1)
Quarter: 2015Q1

REPORT INFORMATION
  Report Type: Spontaneous
  Country: US (occurrence: US)
  Receive Date: 20150310
  Receipt Date: 20150310
  Transmission Date: 20150721
  Serious: Yes (Death, Hospitalization, Other)
  Sender: FDA-Public Use
  Company Number: US-TEVA-545907USA

PATIENT
  Age: 3 Decade
  Sex: Male

DRUGS (1)
  1. NUVIGIL [Suspect]
     Active Substance: ARMODAFINIL
     Indication: FATIGUE
     Route: 065

REACTIONS (4)
  - Feeling abnormal [Unknown]
  - Death [Fatal]
  - Stevens-Johnson syndrome [Unknown]
  - Necrotising fasciitis [Unknown]
